FAERS Safety Report 5967693-9 (Version None)
Quarter: 2008Q4

REPORT INFORMATION
  Report Type: 
  Country: None (occurrence: None)
  Receive Date: 20081126
  Receipt Date: 20081114
  Transmission Date: 20090506
  Serious: Yes (Other)
  Sender: FDA-Public Use
  Company Number: GB-RANBAXY-2008RR-19365

PATIENT
  Age: 79 Year
  Sex: Male

DRUGS (5)
  1. DOXYCYCLINE [Suspect]
     Indication: DEVICE RELATED INFECTION
  2. MEROPENEM [Suspect]
     Indication: DEVICE RELATED INFECTION
  3. VANCOMYCIN HYDROCHLORIDE [Suspect]
     Indication: DEVICE RELATED INFECTION
  4. FUSIDIC ACID [Concomitant]
     Indication: DEVICE RELATED INFECTION
  5. PRISTINAMYCIN [Concomitant]
     Indication: DEVICE RELATED INFECTION
     Dosage: UNK

REACTIONS (1)
  - DRUG INTOLERANCE [None]
